FAERS Safety Report 6166680-8 (Version None)
Quarter: 2009Q2

REPORT INFORMATION
  Report Type: 
  Country: None (occurrence: None)
  Receive Date: 20090423
  Receipt Date: 20090423
  Transmission Date: 20091009
  Serious: Yes (Life-Threatening)
  Sender: FDA-Public Use
  Company Number: None

PATIENT
  Age: 67 Year
  Sex: Female

DRUGS (1)
  1. ZOSYN [Suspect]
     Indication: LOCALISED INFECTION
     Dosage: 2.25GM ONE TIME IV DRIP
     Route: 041
     Dates: start: 20080426, end: 20080426

REACTIONS (7)
  - ANAPHYLACTIC REACTION [None]
  - HYPOTENSION [None]
  - RASH [None]
  - RESPIRATION ABNORMAL [None]
  - SIMILAR REACTION ON PREVIOUS EXPOSURE TO DRUG [None]
  - URTICARIA [None]
  - WHEEZING [None]
